FAERS Safety Report 7215575-7 (Version None)
Quarter: 2011Q1

REPORT INFORMATION
  Report Type: 
  Country: None (occurrence: None)
  Receive Date: 20110104
  Receipt Date: 20110104
  Transmission Date: 20110831
  Serious: Yes (Hospitalization, Other)
  Sender: FDA-Public Use
  Company Number: None

PATIENT
  Sex: Female
  Weight: 90.7194 kg

DRUGS (2)
  1. CYMBALTA [Suspect]
     Indication: CHRONIC FATIGUE SYNDROME
     Dosage: 120MG 1 DAY PO
     Route: 048
     Dates: start: 20080701, end: 20100831
  2. CYMBALTA [Suspect]
     Indication: FIBROMYALGIA
     Dosage: 120MG 1 DAY PO
     Route: 048
     Dates: start: 20080701, end: 20100831

REACTIONS (5)
  - DELUSION [None]
  - SUICIDAL IDEATION [None]
  - CONFUSIONAL STATE [None]
  - MORBID THOUGHTS [None]
  - ABNORMAL BEHAVIOUR [None]
